FAERS Safety Report 5497628-7 (Version None)
Quarter: 2007Q4

REPORT INFORMATION
  Report Type: 
  Country: None (occurrence: None)
  Receive Date: 20071025
  Receipt Date: 20061219
  Transmission Date: 20080405
  Serious: No
  Sender: FDA-Public Use
  Company Number: A0632129A

PATIENT
  Sex: Male

DRUGS (2)
  1. ADVAIR DISKUS 100/50 [Suspect]
     Indication: ASTHMA
     Dosage: 1PUFF TWICE PER DAY
     Route: 055
     Dates: end: 20061212
  2. NO CONCURRENT MEDICATION [Concomitant]

REACTIONS (2)
  - EXTRASYSTOLES [None]
  - HEART RATE INCREASED [None]
